FAERS Safety Report 5691440-1 (Version None)
Quarter: 2008Q2

REPORT INFORMATION
  Report Type: 
  Country: None (occurrence: None)
  Receive Date: 20080401
  Receipt Date: 20080401
  Transmission Date: 20081010
  Serious: Yes (Life-Threatening, Hospitalization, Other)
  Sender: FDA-Public Use
  Company Number: None

PATIENT
  Age: 35 Year
  Sex: Female
  Weight: 58.9676 kg

DRUGS (2)
  1. CYMBALTA [Suspect]
     Indication: ANXIETY
     Dosage: 60MG ONCE A DAY PO
     Route: 048
     Dates: start: 20080229, end: 20080327
  2. CYMBALTA [Suspect]
     Indication: FIBROMYALGIA
     Dosage: 60MG ONCE A DAY PO
     Route: 048
     Dates: start: 20080229, end: 20080327

REACTIONS (4)
  - DEPRESSION [None]
  - HEPATOCELLULAR INJURY [None]
  - OVERDOSE [None]
  - SUICIDE ATTEMPT [None]
